FAERS Safety Report 12729920 (Version 1)
Quarter: 2016Q3

REPORT INFORMATION
  Report Type: Spontaneous
  Country: US (occurrence: US)
  Receive Date: 20160909
  Receipt Date: 20160909
  Transmission Date: 20161109
  Serious: Yes (Disabling, Other)
  Sender: FDA-Public Use
  Company Number: US-SAOL THERAPEUTICS-2016SAO00616

PATIENT
  Age: 17 Year
  Sex: Female

DRUGS (2)
  1. LIORESAL [Suspect]
     Active Substance: BACLOFEN
     Indication: MUSCLE SPASTICITY
  2. LIORESAL [Suspect]
     Active Substance: BACLOFEN
     Indication: CEREBRAL PALSY
     Dosage: 300 ?G, \DAY
     Route: 037

REACTIONS (3)
  - Gait disturbance [Unknown]
  - Muscular weakness [Unknown]
  - Hypotonia [Unknown]

NARRATIVE: CASE EVENT DATE: 201607
